FAERS Safety Report 8057408-5 (Version None)
Quarter: 2012Q1

REPORT INFORMATION
  Report Type: 
  Country: None (occurrence: None)
  Receive Date: 20120119
  Receipt Date: 20120109
  Transmission Date: 20120608
  Serious: Yes (Other)
  Sender: FDA-Public Use
  Company Number: US-RB-036290-12

PATIENT
  Sex: Male

DRUGS (3)
  1. BUPRENORPHINE HCL [Suspect]
     Route: 064
     Dates: start: 20110516, end: 20110701
  2. SUBOXONE [Suspect]
     Indication: DRUG DEPENDENCE
     Dosage: VARIOUS DOSES
     Route: 064
     Dates: start: 20110221, end: 20110515
  3. BUPRENORPHINE HCL [Suspect]
     Indication: DRUG DEPENDENCE
     Dosage: TAPERED FROM 16 MG TO 8 MG/DAILY
     Route: 064
     Dates: start: 20110701, end: 20111130

REACTIONS (2)
  - FOETAL EXPOSURE DURING PREGNANCY [None]
  - JAUNDICE NEONATAL [None]
